FAERS Safety Report 8065002-5 (Version None)
Quarter: 2012Q1

REPORT INFORMATION
  Report Type: 
  Country: None (occurrence: None)
  Receive Date: 20120124
  Receipt Date: 20120120
  Transmission Date: 20120608
  Serious: No
  Sender: FDA-Public Use
  Company Number: US-BIOGENIDEC-2012BI002464

PATIENT
  Sex: Female

DRUGS (6)
  1. TYSABRI [Suspect]
     Indication: MULTIPLE SCLEROSIS
     Route: 042
     Dates: start: 20110207
  2. AMANTADINE HCL [Concomitant]
     Indication: FATIGUE
     Dates: start: 19780101, end: 20110901
  3. KEPPRA [Concomitant]
     Indication: MUSCLE SPASMS
     Route: 048
     Dates: start: 20110301
  4. FLU-SHOT [Concomitant]
     Indication: ANTIVIRAL PROPHYLAXIS
     Dates: start: 20111001, end: 20111001
  5. KEPPRA [Concomitant]
     Indication: TREMOR
     Route: 048
     Dates: start: 20110301
  6. XANAX [Concomitant]
     Indication: MUSCLE SPASMS

REACTIONS (4)
  - COLONIC POLYP [None]
  - DECREASED IMMUNE RESPONSIVENESS [None]
  - ANXIETY [None]
  - VIRAL INFECTION [None]
